FAERS Safety Report 23053952 (Version 1)
Quarter: 2023Q4

REPORT INFORMATION
  Report Type: Spontaneous
  Country: NL (occurrence: NL)
  Receive Date: 20231011
  Receipt Date: 20231011
  Transmission Date: 20240110
  Serious: Yes (Other)
  Sender: FDA-Public Use
  Company Number: None

PATIENT
  Age: 31 Year
  Sex: Female
  Weight: 60 kg

DRUGS (4)
  1. MONTELUKAST [Suspect]
     Active Substance: MONTELUKAST SODIUM
     Indication: Hypersensitivity
     Dosage: TABLET COATED 10 MG, 1 X PER DAY 1 TABLET
     Dates: start: 20130101, end: 20230807
  2. CIMETIDINE [Concomitant]
     Active Substance: CIMETIDINE
     Dosage: TABLET, 200 MG (MILLIGRAM)
  3. Beclometasone, Formoterol [Concomitant]
     Dosage: AEROSOL, 200/6 UG/DOSE (MICROGRAMS PER DOSE)
  4. CETIRIZINE [Concomitant]
     Active Substance: CETIRIZINE HYDROCHLORIDE
     Dosage: TABLET, 10 MG (MILLIGRAM)

REACTIONS (5)
  - Condition aggravated [Recovering/Resolving]
  - Irritability [Recovering/Resolving]
  - Depressed mood [Recovering/Resolving]
  - Dissociative disorder [Recovering/Resolving]
  - Hallucination, auditory [Recovering/Resolving]
